FAERS Safety Report 6903451-6 (Version None)
Quarter: 2010Q3

REPORT INFORMATION
  Report Type: 
  Country: None (occurrence: None)
  Receive Date: 20100803
  Receipt Date: 20081002
  Transmission Date: 20110219
  Serious: Yes (Other)
  Sender: FDA-Public Use
  Company Number: US-PFIZER INC-2008083547

PATIENT
  Sex: Female

DRUGS (10)
  1. LYRICA [Suspect]
     Indication: FIBROMYALGIA
     Route: 048
     Dates: start: 20080429, end: 20080601
  2. DRUG, UNSPECIFIED [Concomitant]
     Indication: BACK PAIN
  3. CYMBALTA [Concomitant]
  4. WELLBUTRIN [Concomitant]
  5. PROTONIX [Concomitant]
  6. CALCIUM MEFOLINATE [Concomitant]
     Indication: HYPOVITAMINOSIS
  7. KLONOPIN [Concomitant]
  8. LIBRIUM [Concomitant]
  9. PROVIGIL [Concomitant]
  10. SYNTHROID [Concomitant]

REACTIONS (4)
  - DRUG INEFFECTIVE [None]
  - MOOD SWINGS [None]
  - SUICIDE ATTEMPT [None]
  - WEIGHT INCREASED [None]
